FAERS Safety Report 8834154 (Version 3)
Quarter: 2012Q4

REPORT INFORMATION
  Report Type: 
  Country: NO (occurrence: NO)
  Receive Date: 20121010
  Receipt Date: 20121023
  Transmission Date: 20130627
  Serious: Yes (Hospitalization, Other)
  Sender: FDA-Public Use
  Company Number: PHHY2012NO088753

PATIENT
  Age: 23 Year
  Sex: Male

DRUGS (2)
  1. CLOZAPINE [Suspect]
     Dosage: 900 mg per day
     Route: 048
  2. CLOZAPINE [Suspect]
     Dosage: 400 mg, per day

REACTIONS (15)
  - Colitis [Recovering/Resolving]
  - Nausea [Recovering/Resolving]
  - Vomiting [Recovering/Resolving]
  - Decreased appetite [Recovering/Resolving]
  - Flatulence [Recovered/Resolved]
  - Abdominal tenderness [Recovering/Resolving]
  - Inflammation [Recovering/Resolving]
  - C-reactive protein increased [Recovered/Resolved]
  - Gastrointestinal infection [Recovering/Resolving]
  - Body temperature increased [Recovered/Resolved]
  - Hyperhidrosis [Recovering/Resolving]
  - Feeling cold [Recovering/Resolving]
  - Blood pressure diastolic decreased [Recovering/Resolving]
  - Heart rate increased [Recovered/Resolved]
  - Antipsychotic drug level increased [Recovering/Resolving]
